FAERS Safety Report 5431862-7 (Version None)
Quarter: 2007Q3

REPORT INFORMATION
  Report Type: 
  Country: None (occurrence: None)
  Receive Date: 20070731
  Receipt Date: 20070601
  Transmission Date: 20080115
  Serious: No
  Sender: FDA-Public Use
  Company Number: US200705004229

PATIENT
  Age: 52 Year
  Sex: Female

DRUGS (4)
  1. BYETTA [Suspect]
     Indication: DIABETES MELLITUS
     Dosage: 5 UG, 2/D, SUBCUTANEOUS, 10 UG, SUBCUTANEOUS
     Route: 058
     Dates: start: 20070425, end: 20070501
  2. BYETTA [Suspect]
     Indication: DIABETES MELLITUS
     Dosage: 5 UG, 2/D, SUBCUTANEOUS, 10 UG, SUBCUTANEOUS
     Route: 058
     Dates: start: 20070524, end: 20070601
  3. GLUCOPHAGE [Concomitant]
  4. GLUCOTROL [Concomitant]

REACTIONS (4)
  - BLOOD GLUCOSE INCREASED [None]
  - DRUG ADMINISTRATION ERROR [None]
  - DRUG EFFECT DECREASED [None]
  - INJECTION SITE IRRITATION [None]
